FAERS Safety Report 10641445 (Version 1)
Quarter: 2014Q4

REPORT INFORMATION
  Report Type: Spontaneous
  Country: JP (occurrence: None)
  Receive Date: 20141208
  Receipt Date: 20141208
  Transmission Date: 20150529
  Serious: Yes (Other)
  Sender: FDA-Public Use
  Company Number: 2014PRN00032

PATIENT
  Age: 29 Year
  Sex: Female

DRUGS (4)
  1. CLOBAZAM (CLOBAZAM) [Concomitant]
     Active Substance: CLOBAZAM
  2. PHENYTOIN (PHENYTOIN) [Concomitant]
     Active Substance: PHENYTOIN
  3. LEVETIRACTAM [Suspect]
     Active Substance: LEVETIRACETAM
     Indication: EPILEPSY
     Dosage: 1X/DAY
     Dates: start: 2013
  4. SODIUM VALPROATE (SODIUM VALPROATE) [Concomitant]
     Active Substance: VALPROATE SODIUM

REACTIONS (1)
  - Rhabdomyolysis [None]

NARRATIVE: CASE EVENT DATE: 2013
